FAERS Safety Report 14497757 (Version 1)
Quarter: 2018Q1

REPORT INFORMATION
  Report Type: Spontaneous
  Country: NZ (occurrence: NZ)
  Receive Date: 20180207
  Receipt Date: 20180207
  Transmission Date: 20180509
  Serious: Yes (Other)
  Sender: FDA-Public Use
  Company Number: NZ-BRACCO-2018NZ00397

PATIENT
  Age: 52 Year
  Sex: Female

DRUGS (3)
  1. DOTAREM [Suspect]
     Active Substance: GADOTERATE MEGLUMINE
     Indication: NUCLEAR MAGNETIC RESONANCE IMAGING
     Dosage: 15 ML, UNK
     Dates: start: 20180115, end: 20180115
  2. GLUCAGON. [Suspect]
     Active Substance: GLUCAGON
     Indication: PRODUCT USED FOR UNKNOWN INDICATION
     Dosage: 1 MG, UNK
     Dates: start: 20180115, end: 20180115
  3. VOLUMEN [Suspect]
     Active Substance: BARIUM SULFATE
     Indication: NUCLEAR MAGNETIC RESONANCE IMAGING
     Dosage: 1350 ML, SINGLE
     Route: 048
     Dates: start: 20180115, end: 20180115

REACTIONS (2)
  - Seizure [Recovering/Resolving]
  - Off label use [Recovering/Resolving]

NARRATIVE: CASE EVENT DATE: 20180115
